FAERS Safety Report 10229040 (Version 1)
Quarter: 2014Q2

REPORT INFORMATION
  Report Type: Spontaneous
  Country: US (occurrence: US)
  Receive Date: 20140610
  Receipt Date: 20140610
  Transmission Date: 20141212
  Serious: Yes (Other)
  Sender: FDA-Public Use
  Company Number: US-RB-068428-14

PATIENT
  Age: 23 Year
  Sex: Female

DRUGS (3)
  1. SUBOXONE FILM [Suspect]
     Indication: DRUG DEPENDENCE
     Dosage: SUBOXONE FILM; PRESCRIBED 8 MG DAILY, CUTTING FILM INTO PIECES, TAKING THE PIECES THROUGHOUT THE DAY
     Route: 060
     Dates: start: 2012
  2. PROZAC [Concomitant]
     Indication: DEPRESSION
     Dosage: DOSING DETAILS UNKNOWN
     Route: 048
  3. NICOTINE [Concomitant]
     Indication: NICOTINE DEPENDENCE
     Dosage: SMOKING 5 CIGARETTES DAILY
     Route: 055

REACTIONS (3)
  - Wrong technique in drug usage process [Not Recovered/Not Resolved]
  - Maternal exposure during pregnancy [Not Recovered/Not Resolved]
  - Suicidal ideation [Unknown]
